FAERS Safety Report 19180534 (Version 1)
Quarter: 2021Q2

REPORT INFORMATION
  Report Type: Spontaneous
  Country: US (occurrence: US)
  Receive Date: 20210426
  Receipt Date: 20210426
  Transmission Date: 20210717
  Serious: Yes (Hospitalization)
  Sender: FDA-Public Use
  Company Number: None

PATIENT
  Age: 78 Year
  Sex: Female

DRUGS (8)
  1. ONDANSETRON [Concomitant]
     Active Substance: ONDANSETRON
  2. TRAMADOL. [Concomitant]
     Active Substance: TRAMADOL
  3. LOSARTAN. [Concomitant]
     Active Substance: LOSARTAN
  4. CELECOXIB. [Concomitant]
     Active Substance: CELECOXIB
  5. FORTEO [Suspect]
     Active Substance: TERIPARATIDE
     Indication: PRODUCT USED FOR UNKNOWN INDICATION
     Route: 058
     Dates: start: 20190711
  6. GABAPENTIN. [Concomitant]
     Active Substance: GABAPENTIN
  7. WARFARIN [Concomitant]
     Active Substance: WARFARIN
  8. P[ENTASA [Concomitant]

REACTIONS (2)
  - Knee arthroplasty [None]
  - Therapy interrupted [None]

NARRATIVE: CASE EVENT DATE: 20210420
